FAERS Safety Report 15210199 (Version 1)
Quarter: 2018Q3

REPORT INFORMATION
  Report Type: Report from Study
  Country: US (occurrence: US)
  Receive Date: 20180727
  Receipt Date: 20180727
  Transmission Date: 20181010
  Serious: No
  Sender: FDA-Public Use
  Company Number: PHEH2018US029843

PATIENT
  Age: 46 Year
  Sex: Female

DRUGS (3)
  1. KISQALI [Suspect]
     Active Substance: RIBOCICLIB
     Indication: BREAST CANCER METASTATIC
     Dosage: 200 MG, TID
     Route: 048
     Dates: start: 20170407
  2. ZOLADEX [Concomitant]
     Active Substance: GOSERELIN ACETATE
     Indication: PRODUCT USED FOR UNKNOWN INDICATION
     Dosage: SHOT
     Route: 065
  3. KISQALI [Suspect]
     Active Substance: RIBOCICLIB
     Indication: BONE CANCER

REACTIONS (7)
  - Muscle spasms [Recovering/Resolving]
  - Weight decreased [Unknown]
  - Meniscus injury [Unknown]
  - Pain [Recovering/Resolving]
  - Inappropriate schedule of drug administration [Unknown]
  - Back pain [Recovering/Resolving]
  - Alopecia [Unknown]

NARRATIVE: CASE EVENT DATE: 201706
